FAERS Safety Report 23123987 (Version 1)
Quarter: 2023Q4

REPORT INFORMATION
  Report Type: Spontaneous
  Country: US (occurrence: US)
  Receive Date: 20231030
  Receipt Date: 20231030
  Transmission Date: 20240110
  Serious: Yes (Other)
  Sender: FDA-Public Use
  Company Number: US-BAYER-2023A149983

PATIENT
  Age: 33 Year
  Sex: Male
  Weight: 90.26 kg

DRUGS (1)
  1. JIVI [Suspect]
     Active Substance: DAMOCTOCOG ALFA PEGOL
     Indication: Factor VIII deficiency
     Dosage: 4000 UNITS DAILY AS NEEDED
     Route: 042
     Dates: start: 20230104

REACTIONS (2)
  - Haemarthrosis [None]
  - Weight increased [None]

NARRATIVE: CASE EVENT DATE: 20231002
